FAERS Safety Report 6849952-0 (Version None)
Quarter: 2010Q3

REPORT INFORMATION
  Report Type: 
  Country: None (occurrence: None)
  Receive Date: 20100716
  Receipt Date: 20071004
  Transmission Date: 20110219
  Serious: No
  Sender: FDA-Public Use
  Company Number: US-PFIZER INC-2007085065

PATIENT
  Sex: Male
  Weight: 87.272 kg

DRUGS (5)
  1. CHANTIX [Suspect]
     Indication: SMOKING CESSATION THERAPY
     Dates: start: 20071001
  2. AVAPRO [Concomitant]
  3. NYQUIL [Concomitant]
  4. ALKA-SELTZER [Concomitant]
  5. ACETAMINOPHEN [Concomitant]

REACTIONS (1)
  - HEADACHE [None]
